FAERS Safety Report 5530997-8 (Version None)
Quarter: 2007Q4

REPORT INFORMATION
  Report Type: 
  Country: None (occurrence: None)
  Receive Date: 20071130
  Receipt Date: 20071120
  Transmission Date: 20080405
  Serious: Yes (Other)
  Sender: FDA-Public Use
  Company Number: US-PFIZER INC-2007091930

PATIENT
  Sex: Female
  Weight: 59.9 kg

DRUGS (4)
  1. CHANTIX [Suspect]
     Indication: SMOKING CESSATION THERAPY
     Dates: start: 20071001, end: 20071101
  2. FOSAMAX [Concomitant]
  3. HYZAAR [Concomitant]
     Indication: BLOOD PRESSURE ABNORMAL
  4. VYTORIN [Concomitant]
     Indication: HYPERTENSION

REACTIONS (12)
  - ABDOMINAL PAIN [None]
  - CONSTIPATION [None]
  - DYSPEPSIA [None]
  - ERUCTATION [None]
  - FLATULENCE [None]
  - GASTROENTERITIS [None]
  - HYPOTENSION [None]
  - INSOMNIA [None]
  - MALAISE [None]
  - NAUSEA [None]
  - PARAESTHESIA [None]
  - PERIPHERAL COLDNESS [None]
